FAERS Safety Report 22821955 (Version 4)
Quarter: 2024Q1

REPORT INFORMATION
  Report Type: Spontaneous
  Country: JP (occurrence: JP)
  Receive Date: 20230814
  Receipt Date: 20240206
  Transmission Date: 20240410
  Serious: Yes (Other)
  Sender: FDA-Public Use
  Company Number: JP-TAKEDA-2023TJP009221

PATIENT

DRUGS (3)
  1. ZEJULA [Suspect]
     Active Substance: NIRAPARIB
     Indication: Ovarian cancer recurrent
     Dosage: 200 MILLIGRAM
     Route: 048
     Dates: start: 20230607, end: 20230621
  2. ZEJULA [Suspect]
     Active Substance: NIRAPARIB
     Dosage: 100 MILLIGRAM
     Route: 048
     Dates: start: 20230712
  3. ZEJULA [Suspect]
     Active Substance: NIRAPARIB
     Dosage: UNK
     Route: 048
     Dates: start: 202311, end: 20240131

REACTIONS (5)
  - Renal impairment [Not Recovered/Not Resolved]
  - Platelet count decreased [Recovering/Resolving]
  - Blood creatinine abnormal [Recovering/Resolving]
  - Platelet count decreased [Recovering/Resolving]
  - Platelet count decreased [Not Recovered/Not Resolved]
